FAERS Safety Report 5309234-5 (Version None)
Quarter: 2007Q2

REPORT INFORMATION
  Report Type: 
  Country: None (occurrence: None)
  Receive Date: 20070423
  Receipt Date: 20070405
  Transmission Date: 20071010
  Serious: Yes (Life-Threatening, Disabling)
  Sender: FDA-Public Use
  Company Number: 2006JP004764

PATIENT
  Age: 63 Year
  Sex: Female

DRUGS (7)
  1. PROGRAF [Suspect]
     Indication: RHEUMATOID ARTHRITIS
     Dosage: SEE IMAGE
     Route: 048
     Dates: start: 20061030, end: 20061112
  2. PROGRAF [Suspect]
     Indication: RHEUMATOID ARTHRITIS
     Dosage: SEE IMAGE
     Route: 048
     Dates: start: 20061113, end: 20061116
  3. PREDNISOLONE [Concomitant]
  4. VOLTAREN [Concomitant]
  5. OPALMON (LIMAPROST) [Concomitant]
  6. RIMATIL (BUCILLAMINE) [Concomitant]
  7. GASTER D [Concomitant]

REACTIONS (4)
  - AGRANULOCYTOSIS [None]
  - EFFUSION [None]
  - ENTEROBACTER INFECTION [None]
  - POST PROCEDURAL INFECTION [None]
